FAERS Safety Report 5060112-9 (Version None)
Quarter: 2006Q3

REPORT INFORMATION
  Report Type: 
  Country: None (occurrence: None)
  Receive Date: 20060719
  Receipt Date: 20060707
  Transmission Date: 20061208
  Serious: Yes (Death, Hospitalization)
  Sender: FDA-Public Use
  Company Number: A-CH2006-12220

PATIENT
  Age: 73 Year
  Sex: Female
  Weight: 70 kg

DRUGS (4)
  1. TRACLEER [Suspect]
     Indication: PULMONARY HYPERTENSION
     Dosage: 125 MG BID; ORAL, 62.5 MG, BID; ORAL
     Route: 048
     Dates: start: 20051101, end: 20051201
  2. TRACLEER [Suspect]
     Indication: PULMONARY HYPERTENSION
     Dosage: 125 MG BID; ORAL, 62.5 MG, BID; ORAL
     Route: 048
     Dates: start: 20051201, end: 20060407
  3. METFORMIN               (METFORMIN) [Suspect]
  4. DICLOFENAC             (DICLOFENAC) [Suspect]

REACTIONS (3)
  - CARDIAC FAILURE [None]
  - LACTIC ACIDOSIS [None]
  - RENAL FAILURE ACUTE [None]
